FAERS Safety Report 8312826-2 (Version None)
Quarter: 2012Q2

REPORT INFORMATION
  Report Type: 
  Country: None (occurrence: None)
  Receive Date: 20120426
  Receipt Date: 20120419
  Transmission Date: 20120825
  Serious: No
  Sender: FDA-Public Use
  Company Number: US-PFIZER INC-2012086184

PATIENT
  Sex: Female

DRUGS (17)
  1. METHADONE [Concomitant]
     Indication: COMPLEX REGIONAL PAIN SYNDROME
  2. METHADONE [Concomitant]
     Indication: SPINAL OSTEOARTHRITIS
     Dosage: 5 MG 2 TABS Q.8 HOURS
  3. DOXYCYCLINE [Concomitant]
     Indication: ROSACEA
     Dosage: 50 MG HS
  4. PERCOCET [Concomitant]
     Indication: BREAKTHROUGH PAIN
     Dosage: 5-325 MG PRN
  5. LEVOXYL [Concomitant]
     Indication: HYPOTHYROIDISM
     Dosage: 0.05 MG, 1X/DAY
  6. CELEXA [Concomitant]
     Indication: ANXIETY
     Dosage: 20 MG, 3X/DAY
  7. ZAROXOLYN [Concomitant]
     Indication: LYMPHOEDEMA
     Dosage: 2.5 MG 2X/DAY, PRN
  8. POTASSIUM CHLORIDE [Concomitant]
     Dosage: 30 MEQ QD PRN
  9. FLONASE [Concomitant]
     Indication: CHRONIC SINUSITIS
     Dosage: UNK, PRN
  10. LYRICA [Suspect]
     Indication: NEUROPATHY PERIPHERAL
  11. FLEXERIL [Concomitant]
     Indication: MUSCLE SPASMS
     Dosage: 10 MG, 3X/DAY
  12. CELEXA [Concomitant]
     Indication: DEPRESSION
  13. METHADONE [Concomitant]
     Indication: NEUROPATHY PERIPHERAL
  14. LYRICA [Suspect]
     Indication: COMPLEX REGIONAL PAIN SYNDROME
     Dosage: 75 MG, 3X/DAY
  15. ESTRADIOL [Concomitant]
     Indication: HYSTERECTOMY
     Dosage: 75 MG/DAY
  16. BUMEX [Concomitant]
     Indication: LYMPHOEDEMA
     Dosage: 2 MG 1X/DAY, PRN
  17. METROGEL [Concomitant]
     Indication: ROSACEA
     Dosage: DAILY APPLIED TO FACE

REACTIONS (2)
  - HYPERSENSITIVITY [None]
  - SINUS HEADACHE [None]
